FAERS Safety Report 8016018-6 (Version None)
Quarter: 2011Q4

REPORT INFORMATION
  Report Type: 
  Country: None (occurrence: None)
  Receive Date: 20111230
  Receipt Date: 20111230
  Transmission Date: 20120403
  Serious: Yes (Other)
  Sender: FDA-Public Use
  Company Number: None

PATIENT
  Sex: Female
  Weight: 72.574 kg

DRUGS (2)
  1. BUPROPION HCL [Suspect]
     Indication: DEPRESSION
     Dosage: 1 TABLET
     Route: 048
     Dates: start: 20111221, end: 20111224
  2. BUPROPION HCL [Suspect]
     Indication: ANGER
     Dosage: 1 TABLET
     Route: 048
     Dates: start: 20111221, end: 20111224

REACTIONS (8)
  - DEPRESSED MOOD [None]
  - PRODUCT COUNTERFEIT [None]
  - PRODUCT QUALITY ISSUE [None]
  - ANGER [None]
  - NO THERAPEUTIC RESPONSE [None]
  - PRODUCT LABEL ISSUE [None]
  - PRODUCT SUBSTITUTION ISSUE [None]
  - AGGRESSION [None]
